FAERS Safety Report 4765003-6 (Version None)
Quarter: 2005Q3

REPORT INFORMATION
  Report Type: 
  Country: None (occurrence: None)
  Receive Date: 20050907
  Receipt Date: 20050829
  Transmission Date: 20060218
  Serious: Yes (Other)
  Sender: FDA-Public Use
  Company Number: 2005121453

PATIENT
  Age: 78 Year
  Sex: Male

DRUGS (10)
  1. TIKOSYN [Suspect]
     Indication: ATRIAL FIBRILLATION
     Dosage: 1000 MCG (500 MCG, 2 IN 1 D)
  2. ANTIVERT [Suspect]
     Indication: DIZZINESS
     Dosage: 75 MG (25 MG, 3 IN 1 D)
     Dates: start: 20050801
  3. DILTIAZEM [Suspect]
     Indication: ILL-DEFINED DISORDER
     Dates: end: 20050801
  4. ALDACTONE [Suspect]
     Indication: ILL-DEFINED DISORDER
     Dosage: 50 MG (25 MG, 2 IN 1 D)
  5. LASIX [Suspect]
     Indication: ILL-DEFINED DISORDER
  6. ADVAIR DISKUS (FLUTICASONE PROPIONATE, SALMETEROL XINAFOATE) [Concomitant]
  7. PREDNISONE [Concomitant]
  8. PROTONIX [Concomitant]
  9. SPIRIVA [Concomitant]
  10. ZOCOR [Concomitant]

REACTIONS (5)
  - DIZZINESS [None]
  - HYPOTENSION [None]
  - HYPOVOLAEMIA [None]
  - INFLUENZA LIKE ILLNESS [None]
  - RENAL FAILURE [None]
